FAERS Safety Report 9729488 (Version 3)
Quarter: 2015Q3

REPORT INFORMATION
  Report Type: Spontaneous
  Country: US (occurrence: US)
  Receive Date: 20131204
  Receipt Date: 20150804
  Transmission Date: 20151125
  Serious: No
  Sender: FDA-Public Use
  Company Number: US-GILEAD-2009-0021511

PATIENT
  Age: 52 Year
  Sex: Male
  Weight: 72.57 kg

DRUGS (13)
  1. FUROSEMIDE. [Concomitant]
     Active Substance: FUROSEMIDE
  2. NASONEX [Concomitant]
     Active Substance: MOMETASONE FUROATE
  3. MATHOTREXATE [Concomitant]
  4. TOPAMAX [Concomitant]
     Active Substance: TOPIRAMATE
  5. MULTIVITAMIN [Concomitant]
     Active Substance: VITAMINS
  6. LETAIRIS [Suspect]
     Active Substance: AMBRISENTAN
     Indication: PULMONARY ARTERIAL HYPERTENSION
     Route: 048
     Dates: start: 20090321
  7. BENZONATATE. [Concomitant]
     Active Substance: BENZONATATE
  8. PREDNISONE. [Concomitant]
     Active Substance: PREDNISONE
  9. ASPIRIN. [Concomitant]
     Active Substance: ASPIRIN
  10. HCTZ [Concomitant]
     Active Substance: HYDROCHLOROTHIAZIDE
  11. AVAPRO [Concomitant]
     Active Substance: IRBESARTAN
  12. ADVAIR HFA [Concomitant]
     Active Substance: FLUTICASONE PROPIONATE\SALMETEROL XINAFOATE
  13. PROAIR HFA [Concomitant]
     Active Substance: ALBUTEROL SULFATE

REACTIONS (1)
  - Nausea [Unknown]
